FAERS Safety Report 10082311 (Version 1)
Quarter: 2014Q2

REPORT INFORMATION
  Report Type: Spontaneous
  Country: US (occurrence: US)
  Receive Date: 20140416
  Receipt Date: 20140416
  Transmission Date: 20141212
  Serious: Yes (Other)
  Sender: FDA-Public Use
  Company Number: US-JNJFOC-20140406495

PATIENT
  Age: 64 Year
  Sex: Female
  Weight: 106.14 kg

DRUGS (25)
  1. LOSARTAN [Concomitant]
  2. HYDROCHLOROTHIAZIDE [Concomitant]
  3. FLECAINIDE [Concomitant]
  4. TYLENOL-CODEINE 4 [Concomitant]
  5. FUROSEMIDE [Concomitant]
  6. LYRICA [Concomitant]
     Indication: NEURALGIA
  7. CLONAZEPAM [Concomitant]
  8. VALACYCLOVIR [Concomitant]
  9. MAGNESIUM [Concomitant]
  10. BIOTIN [Concomitant]
     Indication: NUTRITIONAL SUPPLEMENTATION
  11. VITAMIN D3 [Concomitant]
  12. ELECTROLYTE SOLUTIONS [Concomitant]
  13. SLOW RELEASE IRON [Concomitant]
  14. ASPIRIN [Concomitant]
     Indication: ATRIAL FIBRILLATION
  15. INVOKANA [Suspect]
     Indication: BLOOD GLUCOSE INCREASED
     Route: 048
     Dates: start: 20131118, end: 20131121
  16. INVOKANA [Suspect]
     Indication: GLYCOSYLATED HAEMOGLOBIN
     Route: 048
     Dates: start: 20131118, end: 20131121
  17. INVOKANA [Suspect]
     Indication: TYPE 2 DIABETES MELLITUS
     Route: 048
     Dates: start: 20131118, end: 20131121
  18. POTASSIUM CHLORIDE [Concomitant]
  19. OXYBUTYNIN [Concomitant]
  20. SIMVASTATIN [Concomitant]
  21. LOVAZA [Concomitant]
  22. CARVEDILOL [Concomitant]
  23. TRADJENTA [Concomitant]
  24. METFORMIN [Concomitant]
  25. HYDRALAZINE [Concomitant]

REACTIONS (3)
  - Arrhythmia [Recovered/Resolved]
  - Gout [Recovered/Resolved]
  - Blood glucose increased [Recovered/Resolved]
